FAERS Safety Report 24458759 (Version 1)
Quarter: 2024Q4

REPORT INFORMATION
  Report Type: Spontaneous
  Country: US (occurrence: None)
  Receive Date: 20241017
  Receipt Date: 20241017
  Transmission Date: 20250115
  Serious: Yes (Other)
  Sender: Public
  Company Number: None

PATIENT
  Age: 62 Year
  Sex: Female

DRUGS (2)
  1. ADEMPAS [Suspect]
     Active Substance: RIOCIGUAT
     Indication: Pulmonary hypertension
     Dosage: TID, ORAL
     Route: 048
     Dates: start: 20230131
  2. WARFARIN [Suspect]
     Active Substance: WARFARIN

REACTIONS (2)
  - Haematuria [None]
  - Uterine leiomyoma [None]

NARRATIVE: CASE EVENT DATE: 20241017
